FAERS Safety Report 9818510 (Version 1)
Quarter: 2014Q1

REPORT INFORMATION
  Report Type: Spontaneous
  Country: JP (occurrence: JP)
  Receive Date: 20140115
  Receipt Date: 20140115
  Transmission Date: 20141002
  Serious: Yes (Hospitalization)
  Sender: FDA-Public Use
  Company Number: JP-SA-2014SA002842

PATIENT
  Age: 89 Year
  Sex: Female

DRUGS (3)
  1. FUROSEMIDE [Suspect]
     Indication: CARDIAC FAILURE CHRONIC
     Route: 065
  2. FUROSEMIDE [Suspect]
     Indication: CARDIAC FAILURE CHRONIC
     Route: 065
  3. SPIRONOLACTONE [Suspect]
     Indication: CARDIAC FAILURE CHRONIC
     Route: 065

REACTIONS (10)
  - Hyponatraemia [Recovered/Resolved]
  - Delirium [Recovering/Resolving]
  - Insomnia [Recovered/Resolved]
  - Agitation [Recovered/Resolved]
  - Poverty of speech [Recovered/Resolved]
  - Apathy [Recovered/Resolved]
  - Libido decreased [Recovered/Resolved]
  - Hypophagia [Recovered/Resolved]
  - Mood altered [Recovering/Resolving]
  - Aggression [Recovering/Resolving]
